FAERS Safety Report 6124308-7 (Version None)
Quarter: 2009Q1

REPORT INFORMATION
  Report Type: 
  Country: None (occurrence: None)
  Receive Date: 20090318
  Receipt Date: 20090318
  Transmission Date: 20090719
  Serious: No
  Sender: FDA-Public Use
  Company Number: None

PATIENT
  Age: 10 Month
  Sex: Female
  Weight: 57.5615 kg

DRUGS (1)
  1. KEPPRA [Suspect]
     Indication: EPILEPSY
     Dosage: 500 MG TWICE A DAY 2 TIMES DAILY STILL TAKIN
     Dates: start: 20090307, end: 20090310

REACTIONS (8)
  - ABDOMINAL DISCOMFORT [None]
  - AGITATION [None]
  - ANOREXIA [None]
  - IMPAIRED WORK ABILITY [None]
  - IRRITABILITY [None]
  - MENTAL IMPAIRMENT [None]
  - NAUSEA [None]
  - SOMNOLENCE [None]
